FAERS Safety Report 6556630-4 (Version None)
Quarter: 2010Q1

REPORT INFORMATION
  Report Type: 
  Country: None (occurrence: None)
  Receive Date: 20100128
  Receipt Date: 20100104
  Transmission Date: 20100710
  Serious: Yes (Death)
  Sender: FDA-Public Use
  Company Number: US-BAYER-201012202GPV

PATIENT
  Age: 43 Year
  Sex: Female

DRUGS (3)
  1. DIPHENHYDRAMINE [Suspect]
     Route: 048
  2. KETOPROFEN [Suspect]
  3. BUPROPION [Suspect]
     Route: 048

REACTIONS (1)
  - DRUG TOXICITY [None]
